FAERS Safety Report 4688733-3 (Version None)
Quarter: 2005Q2

REPORT INFORMATION
  Report Type: 
  Country: None (occurrence: None)
  Receive Date: 20050613
  Receipt Date: 20050609
  Transmission Date: 20051028
  Serious: Yes (Life-Threatening, Hospitalization)
  Sender: FDA-Public Use
  Company Number: PHEH2005US06505

PATIENT
  Age: 75 Year
  Sex: Female
  Weight: 74 kg

DRUGS (2)
  1. ZELNORM [Suspect]
     Indication: CONSTIPATION
     Dosage: 1/2 OF 6 MG BID
     Route: 048
     Dates: start: 20050421
  2. MORPHINE [Concomitant]
     Indication: PAIN

REACTIONS (6)
  - COLECTOMY PARTIAL [None]
  - COLITIS ISCHAEMIC [None]
  - DIVERTICULUM [None]
  - INTESTINAL INFARCTION [None]
  - INTESTINAL ULCER [None]
  - OEDEMA [None]
